FAERS Safety Report 19085070 (Version 1)
Quarter: 2021Q2

REPORT INFORMATION
  Report Type: Spontaneous
  Country: IT (occurrence: IT)
  Receive Date: 20210401
  Receipt Date: 20210401
  Transmission Date: 20210717
  Serious: Yes (Hospitalization)
  Sender: FDA-Public Use
  Company Number: IT-ALLERGAN-2113660US

PATIENT
  Sex: Female

DRUGS (1)
  1. MEMANTINE HCL ? BP [Suspect]
     Active Substance: MEMANTINE
     Indication: DEMENTIA
     Dosage: 40 MG, QD
     Route: 048
     Dates: start: 20201204, end: 20201221

REACTIONS (2)
  - Depressed level of consciousness [Recovering/Resolving]
  - Wrong dose [Unknown]

NARRATIVE: CASE EVENT DATE: 20201204
